FAERS Safety Report 7012651-9 (Version None)
Quarter: 2010Q3

REPORT INFORMATION
  Report Type: 
  Country: None (occurrence: None)
  Receive Date: 20100922
  Receipt Date: 20100914
  Transmission Date: 20110219
  Serious: No
  Sender: FDA-Public Use
  Company Number: 20097187

PATIENT
  Age: 60 Year
  Sex: Female

DRUGS (1)
  1. LIORESAL [Suspect]
     Indication: MUSCLE SPASTICITY
     Dosage: 96 MCG, DAILY, INTRATHECAL
     Route: 037

REACTIONS (7)
  - DEVICE DISLOCATION [None]
  - IMPLANT SITE DISCHARGE [None]
  - IMPLANT SITE EROSION [None]
  - INFECTION [None]
  - MEDICAL DEVICE DISCOMFORT [None]
  - SKIN DISORDER [None]
  - WEIGHT DECREASED [None]
